FAERS Safety Report 24623443 (Version 2)
Quarter: 2024Q4

REPORT INFORMATION
  Report Type: Spontaneous
  Country: FR (occurrence: FR)
  Receive Date: 20241115
  Receipt Date: 20241118
  Transmission Date: 20250115
  Serious: Yes (Hospitalization)
  Sender: TEVA
  Company Number: None

PATIENT
  Age: 73 Year
  Sex: Female
  Weight: 75 kg

DRUGS (4)
  1. NITROFURANTOIN [Suspect]
     Active Substance: NITROFURANTOIN
     Indication: Fungal test positive
     Dosage: FURADANTINE
     Route: 048
     Dates: start: 20241003, end: 20241006
  2. ALBUTEROL [Suspect]
     Active Substance: ALBUTEROL
     Indication: Nasopharyngitis
     Dosage: AIROMIR AUTOHALER 100 MICROGRAMS/DOSE
     Route: 045
     Dates: start: 20240930, end: 20241012
  3. LANSOPRAZOLE [Suspect]
     Active Substance: LANSOPRAZOLE
     Indication: Abdominal pain upper
     Dosage: NR
     Route: 048
     Dates: start: 20241007, end: 20241010
  4. BECLOMETHASONE DIPROPIONATE [Suspect]
     Active Substance: BECLOMETHASONE DIPROPIONATE
     Indication: Nasopharyngitis
     Dosage: 100 MICROGRAMS/DOSE
     Route: 045
     Dates: start: 20240930, end: 20241012

REACTIONS (2)
  - Purpura [Recovering/Resolving]
  - Polyarthritis [Recovering/Resolving]

NARRATIVE: CASE EVENT DATE: 20241007
